FAERS Safety Report 5727766-2 (Version None)
Quarter: 2008Q2

REPORT INFORMATION
  Report Type: 
  Country: None (occurrence: None)
  Receive Date: 20080505
  Receipt Date: 20080422
  Transmission Date: 20081010
  Serious: Yes (Other)
  Sender: FDA-Public Use
  Company Number: US-ELI_LILLY_AND_COMPANY-US200804005676

PATIENT
  Sex: Male

DRUGS (4)
  1. STRATTERA [Suspect]
     Indication: ATTENTION DEFICIT/HYPERACTIVITY DISORDER
     Dosage: 10 MG, UNK
     Dates: start: 20071201
  2. STRATTERA [Suspect]
     Dosage: 25 MG, UNK
  3. STRATTERA [Suspect]
     Dosage: 40 MG, UNK
  4. CLONIDINE HCL [Concomitant]
     Route: 062

REACTIONS (5)
  - ANXIETY [None]
  - EYE IRRITATION [None]
  - EYE PAIN [None]
  - PHARMACEUTICAL PRODUCT COMPLAINT [None]
  - SCLERAL CYST [None]
